FAERS Safety Report 18215507 (Version 2)
Quarter: 2022Q4

REPORT INFORMATION
  Report Type: Spontaneous
  Country: US (occurrence: US)
  Receive Date: 20200901
  Receipt Date: 20221207
  Transmission Date: 20230112
  Serious: Yes (Hospitalization, Other)
  Sender: FDA-Public Use
  Company Number: US-SUN PHARMACEUTICAL INDUSTRIES LTD-2020R1-258573

PATIENT
  Age: 68 Year
  Sex: Male

DRUGS (4)
  1. BICALUTAMIDE [Suspect]
     Active Substance: BICALUTAMIDE
     Indication: Metastatic neoplasm
     Dosage: 50 MILLIGRAM, DAILY
     Route: 065
  2. CARBOPLATIN [Suspect]
     Active Substance: CARBOPLATIN
     Indication: Metastatic neoplasm
     Dosage: 4 AREA UNDER CURVE
     Route: 065
  3. LEUPROLIDE [Suspect]
     Active Substance: LEUPROLIDE
     Indication: Metastatic neoplasm
     Dosage: 45 MILLIGRAM, 6 MONTHLY
     Route: 058
  4. PACLITAXEL [Suspect]
     Active Substance: PACLITAXEL
     Indication: Metastatic neoplasm
     Dosage: 200 MILLIGRAM/SQ. METER
     Route: 065

REACTIONS (3)
  - Condition aggravated [Unknown]
  - Therapy partial responder [Unknown]
  - Fatigue [Unknown]
